FAERS Safety Report 17328911 (Version 1)
Quarter: 2020Q1

REPORT INFORMATION
  Report Type: Spontaneous
  Country: US (occurrence: US)
  Receive Date: 20200127
  Receipt Date: 20200127
  Transmission Date: 20200409
  Serious: Yes (Hospitalization, Other)
  Sender: FDA-Public Use
  Company Number: US-AVION PHARMACEUTICALS, LLC-2079437

PATIENT
  Age: 35 Year
  Sex: Female

DRUGS (1)
  1. BALCOLTRA [Suspect]
     Active Substance: ETHINYL ESTRADIOL\LEVONORGESTREL
     Route: 019

REACTIONS (12)
  - Headache [Recovering/Resolving]
  - Hydrocephalus [Recovering/Resolving]
  - Vomiting [Recovered/Resolved]
  - Hypoaesthesia [Recovering/Resolving]
  - Syringomyelia [Recovering/Resolving]
  - Arnold-Chiari malformation [Recovered/Resolved]
  - Nausea [Recovered/Resolved]
  - Ataxia [Recovering/Resolving]
  - Brain herniation [Recovering/Resolving]
  - Paraesthesia [Recovering/Resolving]
  - Intracranial pressure increased [Recovered/Resolved]
  - Cerebrospinal fluid leakage [Recovered/Resolved]
